FAERS Safety Report 5469581-3 (Version None)
Quarter: 2007Q3

REPORT INFORMATION
  Report Type: 
  Country: None (occurrence: None)
  Receive Date: 20070927
  Receipt Date: 20070924
  Transmission Date: 20080115
  Serious: Yes (Hospitalization)
  Sender: FDA-Public Use
  Company Number: AU-AVENTIS-200718444GDDC

PATIENT
  Age: 69 Year
  Sex: Female

DRUGS (13)
  1. LANTUS [Suspect]
     Indication: DIABETES MELLITUS
     Route: 058
     Dates: start: 19920408
  2. AUTOPEN INSULIN INJECTION PEN [Suspect]
  3. KARVEA [Concomitant]
  4. COLGOUT [Concomitant]
  5. PROGOUT [Concomitant]
  6. FUROSEMIDE [Concomitant]
  7. VASOCARDOL [Concomitant]
  8. EUTROXSIG [Concomitant]
     Dosage: DOSE: UNK
  9. ACIMAX                             /00661201/ [Concomitant]
     Dosage: DOSE: UNK
  10. CARDIZEM [Concomitant]
     Dosage: DOSE: UNK
  11. LEVOTHYROXINE SODIUM [Concomitant]
     Dosage: DOSE: UNK
  12. ASPIRIN [Concomitant]
     Dosage: DOSE: UNK
  13. ACTRAPID [Concomitant]
     Dosage: DOSE: UNK

REACTIONS (2)
  - ARTHRITIS INFECTIVE [None]
  - LIGAMENT RUPTURE [None]
